FAERS Safety Report 14769296 (Version 1)
Quarter: 2018Q2

REPORT INFORMATION
  Report Type: Not Available
  Country: US (occurrence: US)
  Receive Date: 20180417
  Receipt Date: 20180417
  Transmission Date: 20180711
  Serious: No
  Sender: FDA-Public Use
  Company Number: US-NEUROCRINE BIOSCIENCES INC.-2018NBI00259

PATIENT
  Age: 61 Year
  Sex: Male

DRUGS (2)
  1. INGREZZA [Suspect]
     Active Substance: VALBENAZINE
     Route: 048
     Dates: start: 20170628, end: 20180114
  2. INGREZZA [Suspect]
     Active Substance: VALBENAZINE
     Indication: PRODUCT USED FOR UNKNOWN INDICATION
     Route: 048
     Dates: start: 20170620, end: 20170627

REACTIONS (5)
  - Oral discomfort [Unknown]
  - Laboratory test abnormal [Unknown]
  - Tongue disorder [Unknown]
  - Tongue ulceration [Unknown]
  - Trismus [Unknown]

NARRATIVE: CASE EVENT DATE: 20180115
